FAERS Safety Report 7119378-3 (Version None)
Quarter: 2010Q4

REPORT INFORMATION
  Report Type: 
  Country: None (occurrence: None)
  Receive Date: 20101123
  Receipt Date: 20101116
  Transmission Date: 20110411
  Serious: Yes (Hospitalization)
  Sender: FDA-Public Use
  Company Number: PL-JNJFOC-20100506631

PATIENT
  Sex: Female
  Weight: 81.3 kg

DRUGS (15)
  1. GOLIMUMAB [Suspect]
     Indication: RHEUMATOID ARTHRITIS
     Route: 058
  2. GOLIMUMAB [Suspect]
     Route: 058
  3. PLACEBO [Suspect]
     Indication: RHEUMATOID ARTHRITIS
     Route: 058
  4. METHOTREXATE [Suspect]
     Indication: RHEUMATOID ARTHRITIS
     Dosage: 3-6 CAPSULES
     Route: 048
  5. METHOTREXATE [Suspect]
     Route: 048
  6. METHOTREXATE [Concomitant]
     Route: 048
  7. KALIPOZ [Concomitant]
     Route: 048
  8. FOLIC ACID [Concomitant]
     Route: 048
  9. LANSOPRAZOLE [Concomitant]
     Route: 048
  10. ATORVASTATIN [Concomitant]
     Route: 048
  11. ATENOLOL [Concomitant]
     Route: 048
  12. TRIMETAZIDINE HYDROCHLORIDE [Concomitant]
     Route: 048
  13. METHYLPREDNISOLONE [Concomitant]
     Route: 048
  14. RUTINOSCORBIN [Concomitant]
     Route: 048
  15. FERVEX [Concomitant]
     Route: 048

REACTIONS (9)
  - GRANULOCYTE COUNT DECREASED [None]
  - HAEMOGLOBIN DECREASED [None]
  - LATENT TUBERCULOSIS [None]
  - LYMPHOCYTE PERCENTAGE INCREASED [None]
  - NEUTROPHIL PERCENTAGE DECREASED [None]
  - PNEUMONIA [None]
  - URINARY SEDIMENT PRESENT [None]
  - URINE ANALYSIS ABNORMAL [None]
  - WHITE BLOOD CELLS URINE POSITIVE [None]
